FAERS Safety Report 9525225 (Version 1)
Quarter: 2013Q3

REPORT INFORMATION
  Report Type: Spontaneous
  Country: US (occurrence: None)
  Receive Date: 20130913
  Receipt Date: 20130913
  Transmission Date: 20140515
  Serious: Yes (Other)
  Sender: FDA-Public Use
  Company Number: None

PATIENT
  Age: 41 Year
  Sex: Female

DRUGS (1)
  1. SIMPONI [Suspect]
     Dosage: 50 MG  QMN  SQ
     Route: 058
     Dates: start: 201304

REACTIONS (2)
  - Dyspnoea [None]
  - Chest pain [None]
